FAERS Safety Report 13433365 (Version 2)
Quarter: 2017Q2

REPORT INFORMATION
  Report Type: Spontaneous
  Country: US (occurrence: US)
  Receive Date: 20170412
  Receipt Date: 20170424
  Transmission Date: 20170830
  Serious: Yes (Hospitalization, Other)
  Sender: FDA-Public Use
  Company Number: US-AUROBINDO-AUR-APL-2017-32391

PATIENT
  Age: 37 Year
  Sex: Male

DRUGS (2)
  1. DIVALPROEX [Suspect]
     Active Substance: DIVALPROEX SODIUM
     Indication: SEIZURE
     Dosage: 50 DF, 50 TABS OF VALPROIC ACID 500 MG
     Route: 048
  2. DIVALPROEX [Suspect]
     Active Substance: DIVALPROEX SODIUM
     Indication: BIPOLAR DISORDER
     Dosage: 50 DF, 50 TABS OF VALPROIC ACID 500 MG
     Route: 048

REACTIONS (9)
  - Toxicity to various agents [Recovered/Resolved]
  - Somnolence [Unknown]
  - Overdose [Recovered/Resolved]
  - Pancreatitis [Unknown]
  - Vomiting [Unknown]
  - Abdominal pain [Unknown]
  - Body temperature increased [Unknown]
  - Pancreatic pseudocyst [Unknown]
  - Mental status changes [Unknown]
